FAERS Safety Report 9398988 (Version 1)
Quarter: 2013Q3

REPORT INFORMATION
  Report Type: Spontaneous
  Country: AU (occurrence: AU)
  Receive Date: 20130714
  Receipt Date: 20130714
  Transmission Date: 20140515
  Serious: Yes (Disabling)
  Sender: FDA-Public Use
  Company Number: AU-009507513-1307AUS004547

PATIENT
  Age: 69 Year
  Sex: Female
  Weight: 75 kg

DRUGS (1)
  1. SINGULAIR [Suspect]
     Dosage: 10 MG, 1 TIME
     Route: 048
     Dates: start: 20040628, end: 20130529

REACTIONS (3)
  - Mental disorder [Recovered/Resolved]
  - Anxiety [Recovered/Resolved]
  - Insomnia [Recovered/Resolved]
